FAERS Safety Report 19607739 (Version 1)
Quarter: 2021Q3

REPORT INFORMATION
  Report Type: Report from Study
  Country: US (occurrence: US)
  Receive Date: 20210726
  Receipt Date: 20210726
  Transmission Date: 20211014
  Serious: Yes (Hospitalization)
  Sender: FDA-Public Use
  Company Number: US-BRISTOL-MYERS SQUIBB COMPANY-BMS-2021-070914

PATIENT
  Age: 76 Year
  Sex: Female
  Weight: 47.9 kg

DRUGS (2)
  1. NIVOLUMAB [Suspect]
     Active Substance: NIVOLUMAB
     Indication: BLADDER CANCER
     Dosage: 160 MILLIGRAM, Q2WK
     Route: 042
     Dates: start: 20210607, end: 20210628
  2. IPILIMUMAB [Suspect]
     Active Substance: IPILIMUMAB
     Indication: BLADDER CANCER
     Dosage: 53 KILOGRAM, Q2WK
     Route: 042
     Dates: start: 20210607, end: 20210628

REACTIONS (6)
  - Balance disorder [Unknown]
  - Hypercalcaemia [Unknown]
  - Troponin increased [Unknown]
  - Fatigue [Unknown]
  - Asthenia [Unknown]
  - Pruritus [Unknown]

NARRATIVE: CASE EVENT DATE: 20210719
